FAERS Safety Report 17127751 (Version 1)
Quarter: 2019Q4

REPORT INFORMATION
  Report Type: Spontaneous
  Country: IN (occurrence: IN)
  Receive Date: 20191209
  Receipt Date: 20191209
  Transmission Date: 20200122
  Serious: Yes (Hospitalization, Other)
  Sender: FDA-Public Use
  Company Number: IN-TORRENT-00002434

PATIENT
  Age: 71 Year
  Sex: Female

DRUGS (4)
  1. METOPROLOL. [Suspect]
     Active Substance: METOPROLOL
     Indication: HYPERTENSION
  2. LACOSAMIDE. [Suspect]
     Active Substance: LACOSAMIDE
     Indication: SEIZURE
  3. LEVETIRACETAM. [Suspect]
     Active Substance: LEVETIRACETAM
     Indication: SEIZURE
  4. TELMISARTAN. [Concomitant]
     Active Substance: TELMISARTAN
     Indication: HYPERTENSION

REACTIONS (11)
  - Blood lactic acid increased [Unknown]
  - Atrioventricular block complete [Recovered/Resolved]
  - Renal impairment [Recovered/Resolved]
  - Multiple organ dysfunction syndrome [Recovering/Resolving]
  - Hypotension [Unknown]
  - Metabolic encephalopathy [Unknown]
  - Depressed level of consciousness [Unknown]
  - Seizure [Unknown]
  - Diarrhoea [Unknown]
  - Metabolic acidosis [Unknown]
  - Alanine aminotransferase increased [Recovered/Resolved]
